FAERS Safety Report 5128308-5 (Version None)
Quarter: 2006Q4

REPORT INFORMATION
  Report Type: 
  Country: None (occurrence: None)
  Receive Date: 20061011
  Receipt Date: 20061002
  Transmission Date: 20070319
  Serious: Yes (Hospitalization)
  Sender: FDA-Public Use
  Company Number: 2006103379

PATIENT
  Age: 50 Year
  Sex: Female
  Weight: 60 kg

DRUGS (4)
  1. ALDACTONE [Suspect]
     Indication: MUSCULOSKELETAL DISORDER
     Dosage: 75 MG (INTERVAL:   EVERY DAY), ORAL
     Route: 048
     Dates: start: 20060710, end: 20060730
  2. LASIX [Suspect]
     Indication: OEDEMA
     Dosage: 40 MG (40 MG, INTERVAL: EVERY DAY), ORAL
     Route: 048
     Dates: start: 20060710, end: 20060730
  3. XANAX [Concomitant]
  4. PAROXETINE HYDROCHLORIDE [Concomitant]

REACTIONS (5)
  - BLOOD SODIUM DECREASED [None]
  - DEHYDRATION [None]
  - HEPATIC ENCEPHALOPATHY [None]
  - RENAL FAILURE ACUTE [None]
  - SOMNOLENCE [None]
